FAERS Safety Report 23826963 (Version 1)
Quarter: 2024Q2

REPORT INFORMATION
  Report Type: Spontaneous
  Country: US (occurrence: US)
  Receive Date: 20240507
  Receipt Date: 20240507
  Transmission Date: 20240716
  Serious: Yes (Other)
  Sender: FDA-Public Use
  Company Number: US-BRISTOL-MYERS SQUIBB COMPANY-2024-070174

PATIENT
  Age: 76 Year
  Sex: Female
  Weight: 99.79 kg

DRUGS (7)
  1. REVLIMID [Suspect]
     Active Substance: LENALIDOMIDE
     Indication: Lymphoma
     Dosage: DAILY FOR 21 DAYS ON AND 7 DAYS OFF
     Route: 048
  2. SPIRONOLACTONE [Concomitant]
     Active Substance: SPIRONOLACTONE
  3. POTASSIUM [Concomitant]
     Active Substance: POTASSIUM
  4. ZETIA [Concomitant]
     Active Substance: EZETIMIBE
  5. TORSEMIDE [Concomitant]
     Active Substance: TORSEMIDE
  6. SOTALOL [Concomitant]
     Active Substance: SOTALOL
  7. ALLOPURINOL [Concomitant]
     Active Substance: ALLOPURINOL

REACTIONS (2)
  - Device related thrombosis [Unknown]
  - Haemorrhage [Unknown]
